FAERS Safety Report 8425251-0 (Version None)
Quarter: 2012Q2

REPORT INFORMATION
  Report Type: 
  Country: None (occurrence: None)
  Receive Date: 20120611
  Receipt Date: 20120530
  Transmission Date: 20120825
  Serious: Yes (Hospitalization, Other)
  Sender: FDA-Public Use
  Company Number: CA-JNJFOC-20120521491

PATIENT
  Sex: Male
  Weight: 113 kg

DRUGS (4)
  1. REMICADE [Suspect]
     Indication: COLITIS ULCERATIVE
     Route: 042
     Dates: start: 20120515
  2. BENADRYL [Concomitant]
     Indication: PREMEDICATION
     Route: 048
  3. IMURAN [Concomitant]
     Route: 065
  4. ACETAMINOPHEN [Concomitant]
     Indication: PREMEDICATION
     Route: 048

REACTIONS (8)
  - BLOOD PRESSURE DECREASED [None]
  - HEART RATE DECREASED [None]
  - DYSKINESIA [None]
  - UNRESPONSIVE TO STIMULI [None]
  - PALLOR [None]
  - DYSPNOEA [None]
  - EYE MOVEMENT DISORDER [None]
  - HYPERHIDROSIS [None]
